FAERS Safety Report 18674866 (Version 1)
Quarter: 2020Q4

REPORT INFORMATION
  Report Type: Spontaneous
  Country: IT (occurrence: IT)
  Receive Date: 20201229
  Receipt Date: 20201229
  Transmission Date: 20210114
  Serious: Yes (Hospitalization)
  Sender: FDA-Public Use
  Company Number: NVSC2020IT335024

PATIENT
  Age: 21 Year
  Sex: Female

DRUGS (3)
  1. LORAZEPAM. [Suspect]
     Active Substance: LORAZEPAM
     Indication: SUICIDE ATTEMPT
     Dosage: 10 ML (TOTAL)
     Route: 048
     Dates: start: 20201209, end: 20201209
  2. CITALOPRAM [Suspect]
     Active Substance: CITALOPRAM HYDROBROMIDE
     Indication: SUICIDE ATTEMPT
     Dosage: 15 ML (TOTAL)
     Route: 048
     Dates: start: 20201209, end: 20201209
  3. OLANZAPINE. [Suspect]
     Active Substance: OLANZAPINE
     Indication: SUICIDE ATTEMPT
     Dosage: 35 MG (TOTAL)
     Route: 048
     Dates: start: 20201209, end: 20201209

REACTIONS (3)
  - Suicide attempt [Recovering/Resolving]
  - Intentional overdose [Recovering/Resolving]
  - Asthenia [Recovering/Resolving]

NARRATIVE: CASE EVENT DATE: 20201209
